FAERS Safety Report 5986690-0 (Version None)
Quarter: 2008Q4

REPORT INFORMATION
  Report Type: 
  Country: None (occurrence: None)
  Receive Date: 20081209
  Receipt Date: 20080909
  Transmission Date: 20090506
  Serious: No
  Sender: FDA-Public Use
  Company Number: US-AMGEN-KDL306591

PATIENT
  Sex: Male

DRUGS (1)
  1. ENBREL [Suspect]
     Indication: PSORIASIS
     Route: 058
     Dates: start: 20080826

REACTIONS (6)
  - ACNE [None]
  - FEELING COLD [None]
  - NAUSEA [None]
  - ORAL HERPES [None]
  - PSORIASIS [None]
  - PYREXIA [None]
